FAERS Safety Report 23993564 (Version 1)
Quarter: 2024Q2

REPORT INFORMATION
  Report Type: Spontaneous
  Country: GB (occurrence: GB)
  Receive Date: 20240620
  Receipt Date: 20240620
  Transmission Date: 20240715
  Serious: Yes (Hospitalization)
  Sender: FDA-Public Use
  Company Number: GB-MHRA-TPP43889929C10098427YC1718116938854

PATIENT
  Age: 79 Year
  Sex: Female
  Weight: 89 kg

DRUGS (18)
  1. DOXYCYCLINE [Suspect]
     Active Substance: DOXYCYCLINE\DOXYCYCLINE HYCLATE
     Indication: Product used for unknown indication
     Dosage: TWO NOW THEN ONE DAILY
     Route: 065
     Dates: start: 20230731
  2. BECLOMETHASONE DIPROPIONATE\FORMOTEROL FUMARATE\GLYCOPYRROLATE [Concomitant]
     Active Substance: BECLOMETHASONE DIPROPIONATE\FORMOTEROL FUMARATE\GLYCOPYRROLATE
     Indication: Ill-defined disorder
     Dosage: TWO PUFFS TO BE INHALED TWICE A DAY
     Route: 065
     Dates: start: 20230904
  3. PROCHLORPERAZINE [Concomitant]
     Active Substance: PROCHLORPERAZINE
     Indication: Product used for unknown indication
     Dosage: ONE TO BE TAKEN UP TO THREE TIMES A DAY
     Route: 065
     Dates: start: 20221229
  4. ISPAGHULA EXTRACT\PSYLLIUM [Concomitant]
     Active Substance: HERBALS\PLANTAGO OVATA SEED\PLANTAGO SEED
     Indication: Product used for unknown indication
     Dosage: TAKE THE CONTENTS OF ONE SACHET UP TO TWICE A D...
     Route: 065
     Dates: start: 20221229
  5. ASPIRIN [Concomitant]
     Active Substance: ASPIRIN
     Indication: Product used for unknown indication
     Dosage: ONE TO BE TAKEN ONCE DAILY
     Route: 065
     Dates: start: 20221229
  6. FYBOGEL [Concomitant]
     Active Substance: HERBALS\PLANTAGO OVATA SEED
     Indication: Ill-defined disorder
     Dosage: DISSOLVE THE CONTENTS OF ONE SACHET IN WATER AN...
     Route: 065
     Dates: start: 20231227
  7. BECLOMETHASONE DIPROPIONATE [Concomitant]
     Active Substance: BECLOMETHASONE DIPROPIONATE
     Indication: Product used for unknown indication
     Dosage: TWO SPRAYS INTO EACH NOSTRIL TWICE DAILY
     Route: 065
     Dates: start: 20221229
  8. CANDESARTAN [Concomitant]
     Active Substance: CANDESARTAN
     Indication: Ill-defined disorder
     Dosage: TAKE ONE TABLET ONCE A DAY
     Route: 065
     Dates: start: 20230515
  9. FENBID [Concomitant]
     Indication: Ill-defined disorder
     Dosage: APPLY TO AFFECTED AREA(S) AND LIGHTLY RUB IN UN...
     Route: 065
     Dates: start: 20230814
  10. CARBOMER [Concomitant]
     Active Substance: CARBOMER
     Indication: Product used for unknown indication
     Dosage: USE AS REQUIRED?980
     Route: 065
     Dates: start: 20221229
  11. ALBUTEROL [Concomitant]
     Active Substance: ALBUTEROL
     Indication: Ill-defined disorder
     Dosage: TWO PUFFS TO BE INHALED UP TO FOUR TIMES A DAY ...
     Route: 065
     Dates: start: 20240110
  12. BUTYLSCOPOLAMINE BROMIDE [Concomitant]
     Active Substance: BUTYLSCOPOLAMINE BROMIDE
     Indication: Product used for unknown indication
     Dosage: TWO TO BE TAKEN FOUR TIMES A DAY
     Route: 065
     Dates: start: 20221229
  13. SIMVASTATIN [Concomitant]
     Active Substance: SIMVASTATIN
     Indication: Ill-defined disorder
     Dosage: ONE TO BE TAKEN ONCE DAILY
     Route: 065
     Dates: start: 20221229
  14. METHYLPREDNISOLONE [Concomitant]
     Active Substance: METHYLPREDNISOLONE
     Indication: Ill-defined disorder
     Dosage: DOSAGE: 100 /MG USE AS DIRECTED - TWO NOW THEN ONE DAILY
     Route: 065
     Dates: start: 20240410
  15. RANITIDINE HYDROCHLORIDE [Concomitant]
     Active Substance: RANITIDINE HYDROCHLORIDE
     Indication: Ill-defined disorder
     Dosage: TAKE 10-20MLS AFTER MEALS AND AT BEDTIME IF REQ...
     Route: 065
     Dates: start: 20240122
  16. LANSOPRAZOLE [Concomitant]
     Active Substance: LANSOPRAZOLE
     Indication: Product used for unknown indication
     Dosage: ONE TO BE TAKEN EACH MORNING
     Route: 065
     Dates: start: 20221229
  17. ACETAMINOPHEN [Concomitant]
     Active Substance: ACETAMINOPHEN
     Indication: Product used for unknown indication
     Dosage: TWO TO BE TAKEN EVERY 4-6 HOURS UP TO FOUR TIME...
     Route: 065
     Dates: start: 20221229
  18. PREDNISOLONE [Concomitant]
     Active Substance: PREDNISOLONE
     Indication: Ill-defined disorder
     Dosage: DOSAGE: 30 /MG TAKE 30MGS (6 TABLETS) FOR 10 DAYS
     Route: 065
     Dates: start: 20230731

REACTIONS (3)
  - Malaise [Recovered/Resolved]
  - Oedema [Unknown]
  - Dyspnoea [Recovered/Resolved]

NARRATIVE: CASE EVENT DATE: 20240611
